FAERS Safety Report 5495271-7 (Version None)
Quarter: 2007Q4

REPORT INFORMATION
  Report Type: 
  Country: None (occurrence: None)
  Receive Date: 20071023
  Receipt Date: 20071008
  Transmission Date: 20080405
  Serious: Yes (Hospitalization)
  Sender: FDA-Public Use
  Company Number: 2007US002481

PATIENT
  Age: 60 Year
  Sex: Male

DRUGS (14)
  1. PROGRAF [Suspect]
     Indication: RENAL TRANSPLANT
     Dosage: 3 MG, BID ORAL
     Route: 048
  2. MYCOPHENOLATE MOFETIL [Suspect]
     Indication: RENAL TRANSPLANT
     Dosage: 500 MG, BID, ORAL
     Route: 048
  3. PREDNISONE TAB [Suspect]
     Indication: RENAL TRANSPLANT
     Dosage: 10 MG, ORAL
     Route: 048
  4. VICODIN [Suspect]
     Indication: DRUG USE FOR UNKNOWN INDICATION
  5. ACTOS [Concomitant]
  6. GLUCOTROL XL [Concomitant]
  7. LOPRESSOR [Concomitant]
  8. MAG-TAB (MAGNESIUM LACTATE) [Concomitant]
  9. NEURONTIN [Concomitant]
  10. NIFEREX (FOLIC ACID) [Concomitant]
  11. NORVASC [Concomitant]
  12. OSCAL [Concomitant]
  13. ASCORBIC ACID [Concomitant]
  14. K-DUR 10 [Concomitant]

REACTIONS (1)
  - DRUG HYPERSENSITIVITY [None]
